FAERS Safety Report 23382180 (Version 1)
Quarter: 2024Q1

REPORT INFORMATION
  Report Type: Spontaneous
  Country: CN (occurrence: CN)
  Receive Date: 20240109
  Receipt Date: 20240109
  Transmission Date: 20240409
  Serious: Yes (Other)
  Sender: FDA-Public Use
  Company Number: CN-Techdow-2023Techdow000272

PATIENT
  Age: 49 Year
  Sex: Male

DRUGS (8)
  1. HEPARIN SODIUM [Suspect]
     Active Substance: HEPARIN SODIUM
     Indication: Anticoagulant therapy
     Dosage: 250U/H
  2. BUDESONIDE [Concomitant]
     Active Substance: BUDESONIDE
     Indication: Asthma
     Dosage: 1MG,BID
  3. POTASSIUM [Concomitant]
     Active Substance: POTASSIUM
     Indication: Hypokalaemia
     Dosage: LARGE AMOUNTS OF RAPID INTRAVENOUS POTASSIUM SUPPLEMENTATION
  4. Isopropyl bromide [Concomitant]
     Indication: Asthma
     Dosage: 0.5MG,BID
  5. CEFTRIAXONE SODIUM [Concomitant]
     Active Substance: CEFTRIAXONE SODIUM
     Indication: Anti-infective therapy
     Dosage: 2G,QD
  6. Methacrylate sodium succinate [Concomitant]
     Indication: Asthma
     Dosage: 40MG,EVERY 6 HOURS
  7. EPINEPHRINE [Concomitant]
     Active Substance: EPINEPHRINE
     Indication: Asthma
     Dosage: 0.2MG/H
  8. ATRACURIUM [Concomitant]
     Active Substance: ATRACURIUM
     Indication: Asthma
     Dosage: 20MG/H

REACTIONS (3)
  - Gastrointestinal haemorrhage [Not Recovered/Not Resolved]
  - Cerebral haemorrhage [Not Recovered/Not Resolved]
  - Cerebral infarction [Not Recovered/Not Resolved]
